FAERS Safety Report 6119909-6 (Version None)
Quarter: 2009Q1

REPORT INFORMATION
  Report Type: 
  Country: None (occurrence: None)
  Receive Date: 20090316
  Receipt Date: 20090313
  Transmission Date: 20090719
  Serious: Yes (Hospitalization, Other)
  Sender: FDA-Public Use
  Company Number: US-ASTRAZENECA-2008UW26448

PATIENT
  Age: 25 Year
  Sex: Female
  Weight: 63.5 kg

DRUGS (21)
  1. SEROQUEL [Suspect]
     Indication: BIPOLAR DISORDER
     Route: 048
     Dates: start: 19970101, end: 20010301
  2. SEROQUEL [Suspect]
     Indication: BORDERLINE PERSONALITY DISORDER
     Route: 048
     Dates: start: 19970101, end: 20010301
  3. SEROQUEL [Suspect]
     Indication: GENERALISED ANXIETY DISORDER
     Route: 048
     Dates: start: 19970101, end: 20010301
  4. SEROQUEL [Suspect]
     Indication: DISSOCIATION
     Route: 048
     Dates: start: 19970101, end: 20010301
  5. SEROQUEL [Suspect]
     Dosage: 100MG, 200MG
     Route: 048
     Dates: start: 20010301, end: 20010701
  6. SEROQUEL [Suspect]
     Dosage: 100MG, 200MG
     Route: 048
     Dates: start: 20010301, end: 20010701
  7. SEROQUEL [Suspect]
     Dosage: 100MG, 200MG
     Route: 048
     Dates: start: 20010301, end: 20010701
  8. SEROQUEL [Suspect]
     Dosage: 100MG, 200MG
     Route: 048
     Dates: start: 20010301, end: 20010701
  9. SEROQUEL [Suspect]
     Dosage: 25MG, 100MG, 200MG, 300MG
     Route: 048
     Dates: start: 20010701, end: 20060101
  10. SEROQUEL [Suspect]
     Dosage: 25MG, 100MG, 200MG, 300MG
     Route: 048
     Dates: start: 20010701, end: 20060101
  11. SEROQUEL [Suspect]
     Dosage: 25MG, 100MG, 200MG, 300MG
     Route: 048
     Dates: start: 20010701, end: 20060101
  12. SEROQUEL [Suspect]
     Dosage: 25MG, 100MG, 200MG, 300MG
     Route: 048
     Dates: start: 20010701, end: 20060101
  13. SEROQUEL [Suspect]
     Route: 048
     Dates: start: 20060101
  14. SEROQUEL [Suspect]
     Route: 048
     Dates: start: 20060101
  15. SEROQUEL [Suspect]
     Route: 048
     Dates: start: 20060101
  16. SEROQUEL [Suspect]
     Route: 048
     Dates: start: 20060101
  17. EPHEDRINE PLUS [Concomitant]
     Dates: start: 19900101, end: 19960101
  18. EPHEDRINE PLUS [Concomitant]
     Dates: start: 20000101, end: 20040101
  19. ABILIFY [Concomitant]
     Dates: start: 20030601, end: 20040701
  20. DEPAKOTE [Concomitant]
     Dates: start: 19970101
  21. TEMAZEPAM [Concomitant]
     Dates: start: 20080101

REACTIONS (15)
  - ARTHRITIS [None]
  - BLOOD CHOLESTEROL INCREASED [None]
  - BLOOD TRIGLYCERIDES INCREASED [None]
  - C-REACTIVE PROTEIN INCREASED [None]
  - DIABETES MELLITUS [None]
  - GALLBLADDER DISORDER [None]
  - GASTROINTESTINAL DISORDER [None]
  - HYPERTENSION [None]
  - OBESITY [None]
  - PSORIATIC ARTHROPATHY [None]
  - RED BLOOD CELL SEDIMENTATION RATE INCREASED [None]
  - REPRODUCTIVE TRACT DISORDER [None]
  - ROAD TRAFFIC ACCIDENT [None]
  - SUICIDE ATTEMPT [None]
  - WHITE BLOOD CELL COUNT INCREASED [None]
